FAERS Safety Report 5905462-6 (Version None)
Quarter: 2008Q4

REPORT INFORMATION
  Report Type: 
  Country: None (occurrence: None)
  Receive Date: 20081002
  Receipt Date: 20080923
  Transmission Date: 20090506
  Serious: No
  Sender: FDA-Public Use
  Company Number: GB-DENTSPLY-2008-0084-EUR

PATIENT
  Age: 36 Year
  Sex: Female
  Weight: 61.8 kg

DRUGS (2)
  1. XYLOCAINE [Suspect]
     Dates: start: 20070426, end: 20070426
  2. MULTIVITAMIN PREPARATION [Concomitant]
     Dates: start: 20061201, end: 20070501

REACTIONS (1)
  - ABORTION SPONTANEOUS [None]
